FAERS Safety Report 12714344 (Version 1)
Quarter: 2016Q3

REPORT INFORMATION
  Report Type: Spontaneous
  Country: US (occurrence: US)
  Receive Date: 20160905
  Receipt Date: 20160905
  Transmission Date: 20161109
  Serious: No
  Sender: FDA-Public Use
  Company Number: US-JAZZ-2016-US-008882

PATIENT
  Sex: Male

DRUGS (24)
  1. VITAMIN C TR [Concomitant]
  2. CLONAZEPAM. [Concomitant]
     Active Substance: CLONAZEPAM
  3. VALCYTE [Concomitant]
     Active Substance: VALGANCICLOVIR HYDROCHLORIDE
  4. PROBIOTICS [Concomitant]
     Active Substance: PROBIOTICS NOS
  5. VITAMIN B COMPLEX [Concomitant]
     Active Substance: CYANOCOBALAMIN\DEXPANTHENOL\NIACINAMIDE\PYRIDOXINE HYDROCHLORIDE\RIBOFLAVIN 5^-PHOSPHATE SODIUM\THIAMINE HYDROCHLORIDE\VITAMIN B COMPLEX
  6. AZITHROMYCIN ANHYDROUS. [Concomitant]
     Active Substance: AZITHROMYCIN ANHYDROUS
  7. PERCOCET [Concomitant]
     Active Substance: ACETAMINOPHEN\OXYCODONE HYDROCHLORIDE
  8. AMPHOTERICIN B. [Concomitant]
     Active Substance: AMPHOTERICIN B
  9. MULTIVITAMINS [Concomitant]
     Active Substance: VITAMINS
  10. NYSTATIN. [Concomitant]
     Active Substance: NYSTATIN
  11. XYREM [Suspect]
     Active Substance: SODIUM OXYBATE
     Indication: CHRONIC FATIGUE SYNDROME
     Dosage: 2 G, BID
     Route: 048
     Dates: start: 201505, end: 201506
  12. OLIVE LEAF EXTRACT [Concomitant]
  13. ROCEPHIN [Concomitant]
     Active Substance: CEFTRIAXONE SODIUM
  14. FOLATE [Concomitant]
     Active Substance: FOLATE SODIUM
  15. ATOVAQUONE. [Concomitant]
     Active Substance: ATOVAQUONE
  16. ACYCLOVIR. [Concomitant]
     Active Substance: ACYCLOVIR
  17. SEROQUEL [Concomitant]
     Active Substance: QUETIAPINE FUMARATE
  18. MELATONIN [Concomitant]
     Active Substance: MELATONIN
  19. VITAMIN B12 [Concomitant]
     Active Substance: CYANOCOBALAMIN
  20. XYREM [Suspect]
     Active Substance: SODIUM OXYBATE
     Dosage: 4 G, BID
     Route: 048
     Dates: start: 201603
  21. MAGNESIUM CHELATE [Concomitant]
  22. XYREM [Suspect]
     Active Substance: SODIUM OXYBATE
     Dosage: 3 G, BID
     Route: 048
     Dates: start: 201506, end: 201603
  23. VITAMIN D3 [Concomitant]
     Active Substance: CHOLECALCIFEROL
  24. GABAPENTIN. [Concomitant]
     Active Substance: GABAPENTIN

REACTIONS (1)
  - Lumbar puncture [Unknown]
